FAERS Safety Report 18158764 (Version 1)
Quarter: 2020Q3

REPORT INFORMATION
  Report Type: Report from Study
  Country: DE (occurrence: DE)
  Receive Date: 20200817
  Receipt Date: 20200817
  Transmission Date: 20201103
  Serious: Yes (Hospitalization)
  Sender: FDA-Public Use
  Company Number: NVSC2020DE225959

PATIENT
  Sex: Female

DRUGS (3)
  1. ENBREL [Suspect]
     Active Substance: ETANERCEPT
     Indication: PRODUCT USED FOR UNKNOWN INDICATION
     Dosage: UNK
     Route: 065
     Dates: start: 201908
  2. ERELZI [Suspect]
     Active Substance: ETANERCEPT-SZZS
     Indication: RHEUMATOID ARTHRITIS
     Dosage: UNK
     Route: 065
     Dates: start: 201902, end: 201908
  3. METHOTREXATE. [Suspect]
     Active Substance: METHOTREXATE
     Indication: PRODUCT USED FOR UNKNOWN INDICATION
     Dosage: UNK (MTX 2,5)
     Route: 065

REACTIONS (5)
  - Streptococcal sepsis [Recovered/Resolved]
  - Peritonitis [Recovered/Resolved]
  - Salpingo-oophoritis [Recovered/Resolved]
  - Appendicitis [Recovered/Resolved]
  - Ovarian abscess [Recovered/Resolved]

NARRATIVE: CASE EVENT DATE: 20191018
